FAERS Safety Report 5893512-5 (Version None)
Quarter: 2008Q3

REPORT INFORMATION
  Report Type: 
  Country: None (occurrence: None)
  Receive Date: 20080919
  Receipt Date: 20080908
  Transmission Date: 20090109
  Serious: Yes (Other)
  Sender: FDA-Public Use
  Company Number: CAR-2008-027

PATIENT
  Age: 64 Year
  Sex: Female

DRUGS (2)
  1. SUCRALFATE [Suspect]
     Indication: DUODENAL ULCER
     Dosage: 1 G QID
     Dates: start: 20070309, end: 20070312
  2. PANTOPRAZOLE SODIUM [Suspect]

REACTIONS (4)
  - DIARRHOEA [None]
  - DUODENAL STENOSIS [None]
  - SMALL INTESTINE CARCINOMA [None]
  - VOMITING [None]
